FAERS Safety Report 4884762-5 (Version None)
Quarter: 2005Q4

REPORT INFORMATION
  Report Type: 
  Country: None (occurrence: None)
  Receive Date: 20051201
  Receipt Date: 20050923
  Transmission Date: 20060501
  Serious: No
  Sender: FDA-Public Use
  Company Number: 2005PV002454

PATIENT
  Age: 72 Year
  Sex: Male
  Weight: 110.2241 kg

DRUGS (17)
  1. BYETTA [Suspect]
     Indication: DIABETES MELLITUS NON-INSULIN-DEPENDENT
     Dosage: 5 MCG; BID; SC
     Route: 058
     Dates: start: 20050922
  2. METFORMIN [Concomitant]
  3. LANTUS [Concomitant]
  4. TERAZOSIN [Concomitant]
  5. LISINOPRIL [Concomitant]
  6. CARVEDILOL [Concomitant]
  7. POTASSIUM CHLORIDE [Concomitant]
  8. HYDRALAZINE [Concomitant]
  9. LASIX [Concomitant]
  10. ALLOPURINOL [Concomitant]
  11. PANTOPRAZOLE [Concomitant]
  12. SIMVASTATIN [Concomitant]
  13. FEMFIBROZIL [Concomitant]
  14. ASPIRIN [Concomitant]
  15. MUCINEX [Concomitant]
  16. FUROSEMIDE [Concomitant]
  17. FENOFIBRATE [Concomitant]

REACTIONS (3)
  - DIARRHOEA [None]
  - DIZZINESS [None]
  - INJECTION SITE PAIN [None]
